FAERS Safety Report 6294460-1 (Version None)
Quarter: 2009Q3

REPORT INFORMATION
  Report Type: 
  Country: None (occurrence: None)
  Receive Date: 20090803
  Receipt Date: 20090701
  Transmission Date: 20100115
  Serious: No
  Sender: FDA-Public Use
  Company Number: US-BAYER-200921008NA

PATIENT
  Age: 71 Year
  Sex: Female
  Weight: 63 kg

DRUGS (5)
  1. AVELOX [Suspect]
     Indication: BRONCHITIS CHRONIC
     Dosage: TOTAL DAILY DOSE: 400 MG  UNIT DOSE: 400 MG
     Route: 048
     Dates: start: 20090512, end: 20090512
  2. AVELOX [Suspect]
     Dates: start: 20081101
  3. ATENOLOL [Concomitant]
  4. PROTONIX [Concomitant]
  5. PAXIL [Concomitant]

REACTIONS (5)
  - EYE IRRITATION [None]
  - FLUSHING [None]
  - OCULAR HYPERAEMIA [None]
  - PAIN [None]
  - PYREXIA [None]
